FAERS Safety Report 5998854-0 (Version None)
Quarter: 2008Q4

REPORT INFORMATION
  Report Type: 
  Country: None (occurrence: None)
  Receive Date: 20081213
  Receipt Date: 20080723
  Transmission Date: 20090506
  Serious: No
  Sender: FDA-Public Use
  Company Number: US-AMGEN-KDL292969

PATIENT
  Sex: Male

DRUGS (4)
  1. ENBREL [Suspect]
     Indication: RHEUMATOID ARTHRITIS
     Route: 058
     Dates: start: 20021201
  2. ENBREL [Suspect]
     Indication: PSORIASIS
  3. PLAQUENIL [Concomitant]
     Route: 048
     Dates: start: 20080507
  4. METHOTREXATE [Concomitant]

REACTIONS (4)
  - CATARACT [None]
  - FALL [None]
  - LIVER FUNCTION TEST ABNORMAL [None]
  - SKIN EXFOLIATION [None]
